FAERS Safety Report 4793605-X (Version None)
Quarter: 2005Q4

REPORT INFORMATION
  Report Type: 
  Country: None (occurrence: None)
  Receive Date: 20051011
  Receipt Date: 20050812
  Transmission Date: 20060501
  Serious: Yes (Other)
  Sender: FDA-Public Use
  Company Number: GB-BOEHRINGER INGELHEIM PHARMACEUTICALS, INC.-2005-UK-01521UK

PATIENT

DRUGS (1)
  1. SPIRIVA [Suspect]
     Route: 055

REACTIONS (1)
  - INTESTINAL OBSTRUCTION [None]
